FAERS Safety Report 21254466 (Version 2)
Quarter: 2022Q3

REPORT INFORMATION
  Report Type: Spontaneous
  Country: US (occurrence: US)
  Receive Date: 20220825
  Receipt Date: 20220829
  Transmission Date: 20221026
  Serious: No
  Sender: FDA-Public Use
  Company Number: US-PFIZER INC-2019047409

PATIENT
  Age: 90 Year
  Sex: Female
  Weight: 63.05 kg

DRUGS (2)
  1. ESTRING [Suspect]
     Active Substance: ESTRADIOL
     Indication: Pollakiuria
     Dosage: 2 MG, EVERY 3 MONTHS
     Route: 067
     Dates: start: 2018
  2. ESTRING [Suspect]
     Active Substance: ESTRADIOL
     Indication: Nocturia

REACTIONS (3)
  - Device use issue [Unknown]
  - Off label use [Unknown]
  - Product prescribing error [Unknown]

NARRATIVE: CASE EVENT DATE: 20180101
